FAERS Safety Report 19594958 (Version 13)
Quarter: 2025Q2

REPORT INFORMATION
  Report Type: Report from Study
  Country: US (occurrence: US)
  Receive Date: 20210722
  Receipt Date: 20250416
  Transmission Date: 20250716
  Serious: Yes (Other)
  Sender: TAKEDA
  Company Number: US-TAKEDA-US201942039

PATIENT
  Age: 52 Year
  Sex: Female
  Weight: 66 kg

DRUGS (52)
  1. HUMAN IMMUNOGLOBULIN G [Suspect]
     Active Substance: HUMAN IMMUNOGLOBULIN G
     Indication: Stiff person syndrome
     Dosage: 25 GRAM, Q3WEEKS
     Dates: start: 20081107
  2. HUMAN IMMUNOGLOBULIN G [Suspect]
     Active Substance: HUMAN IMMUNOGLOBULIN G
     Indication: Myasthenia gravis
     Dosage: 25 GRAM, Q2WEEKS
     Dates: start: 20160701
  3. HUMAN IMMUNOGLOBULIN G [Suspect]
     Active Substance: HUMAN IMMUNOGLOBULIN G
     Dosage: 25 GRAM, Q2WEEKS
     Dates: start: 20160707
  4. HUMAN IMMUNOGLOBULIN G [Suspect]
     Active Substance: HUMAN IMMUNOGLOBULIN G
     Dosage: 25 GRAM, Q4WEEKS
  5. HUMAN IMMUNOGLOBULIN G [Suspect]
     Active Substance: HUMAN IMMUNOGLOBULIN G
     Dosage: 25 GRAM, Q3WEEKS
  6. ACETAMINOPHEN [Concomitant]
     Active Substance: ACETAMINOPHEN
  7. DIPHENHYDRAMINE [Concomitant]
     Active Substance: DIPHENHYDRAMINE
  8. LIDOCAINE [Concomitant]
     Active Substance: LIDOCAINE
  9. SODIUM CHLORIDE [Concomitant]
     Active Substance: SODIUM CHLORIDE
  10. SODIUM CHLORIDE [Concomitant]
     Active Substance: SODIUM CHLORIDE
  11. ONDANSETRON [Concomitant]
     Active Substance: ONDANSETRON
  12. SOLU-MEDROL [Concomitant]
     Active Substance: METHYLPREDNISOLONE SODIUM SUCCINATE
  13. OLANZAPINE [Concomitant]
     Active Substance: OLANZAPINE
  14. DIVALPROEX SODIUM [Concomitant]
     Active Substance: DIVALPROEX SODIUM
  15. QUETIAPINE [Concomitant]
     Active Substance: QUETIAPINE
  16. ARIPIPRAZOLE [Concomitant]
     Active Substance: ARIPIPRAZOLE
  17. CHLORTHALIDONE [Concomitant]
     Active Substance: CHLORTHALIDONE
  18. RESTASIS [Concomitant]
     Active Substance: CYCLOSPORINE
  19. DIOVAN HCT [Concomitant]
     Active Substance: HYDROCHLOROTHIAZIDE\VALSARTAN
  20. METOPROLOL SUCCINATE [Concomitant]
     Active Substance: METOPROLOL SUCCINATE
  21. CHLORZOXAZONE [Concomitant]
     Active Substance: CHLORZOXAZONE
  22. GABAPENTIN [Concomitant]
     Active Substance: GABAPENTIN
  23. VITAMIN C [Concomitant]
     Active Substance: ASCORBIC ACID
  24. MELATONIN [Concomitant]
     Active Substance: MELATONIN
  25. KERALAC [Concomitant]
     Active Substance: UREA
  26. COENZYME Q10 [Concomitant]
     Active Substance: DIETARY SUPPLEMENT\UBIDECARENONE
  27. MAGNESIUM [Concomitant]
     Active Substance: MAGNESIUM
  28. VITAMIN D NOS [Concomitant]
     Active Substance: CHOLECALCIFEROL\ERGOCALCIFEROL
  29. DENAVIR [Concomitant]
     Active Substance: PENCICLOVIR
  30. VENLAFAXINE [Concomitant]
     Active Substance: VENLAFAXINE HYDROCHLORIDE
  31. NAPROXEN [Concomitant]
     Active Substance: NAPROXEN
  32. LIPITOR [Concomitant]
     Active Substance: ATORVASTATIN CALCIUM
  33. VICODIN [Concomitant]
     Active Substance: ACETAMINOPHEN\HYDROCODONE BITARTRATE
  34. FLONASE [Concomitant]
     Active Substance: FLUTICASONE PROPIONATE
  35. ZOFRAN [Concomitant]
     Active Substance: ONDANSETRON HYDROCHLORIDE
  36. FISH OIL [Concomitant]
     Active Substance: FISH OIL
  37. CALCIUM\VITAMIN D [Concomitant]
     Active Substance: CALCIUM\VITAMIN D
  38. TRAZODONE [Concomitant]
     Active Substance: TRAZODONE HYDROCHLORIDE
  39. EPINEPHRINE [Concomitant]
     Active Substance: EPINEPHRINE
  40. ADVAIR HFA [Concomitant]
     Active Substance: FLUTICASONE PROPIONATE\SALMETEROL XINAFOATE
  41. LAMOTRIGINE [Concomitant]
     Active Substance: LAMOTRIGINE
  42. ADDERALL [Concomitant]
     Active Substance: AMPHETAMINE ASPARTATE\AMPHETAMINE SULFATE\DEXTROAMPHETAMINE SACCHARATE\DEXTROAMPHETAMINE SULFATE
  43. MICARDIS [Concomitant]
     Active Substance: TELMISARTAN
  44. LATUDA [Concomitant]
     Active Substance: LURASIDONE HYDROCHLORIDE
  45. ACTOS [Concomitant]
     Active Substance: PIOGLITAZONE HYDROCHLORIDE
  46. VENLAFAXINE HCL [Concomitant]
     Active Substance: VENLAFAXINE HYDROCHLORIDE
  47. WELLBUTRIN SR [Concomitant]
     Active Substance: BUPROPION HYDROCHLORIDE
  48. DIPHENHYDRAMINE HYDROCHLORIDE [Concomitant]
     Active Substance: DIPHENHYDRAMINE HYDROCHLORIDE
  49. MAGNESIUM OXIDE [Concomitant]
     Active Substance: MAGNESIUM OXIDE
  50. VITAMIN E [Concomitant]
     Active Substance: .ALPHA.-TOCOPHEROL
  51. VITAMIN D3 [Concomitant]
     Active Substance: CHOLECALCIFEROL
  52. METHYLPREDNISOLONE [Concomitant]
     Active Substance: METHYLPREDNISOLONE

REACTIONS (20)
  - Cataract [Unknown]
  - Skin cancer [Unknown]
  - White blood cell count increased [Unknown]
  - Eye infection [Unknown]
  - Infusion related reaction [Unknown]
  - Blister [Unknown]
  - Off label use [Unknown]
  - Product dose omission issue [Unknown]
  - Gastroenteritis viral [Unknown]
  - Skin exfoliation [Unknown]
  - Swelling face [Unknown]
  - Infusion site bruising [Unknown]
  - Asthenia [Recovered/Resolved]
  - Infusion site extravasation [Unknown]
  - Infusion site discomfort [Unknown]
  - Pain [Recovered/Resolved]
  - Blood pressure increased [Unknown]
  - Hypersensitivity [Unknown]
  - Cough [Recovered/Resolved]
  - Headache [Unknown]

NARRATIVE: CASE EVENT DATE: 20081107
